FAERS Safety Report 22355719 (Version 1)
Quarter: 2023Q2

REPORT INFORMATION
  Report Type: Spontaneous
  Country: US (occurrence: US)
  Receive Date: 20230523
  Receipt Date: 20230523
  Transmission Date: 20230722
  Serious: Yes (Hospitalization)
  Sender: FDA-Public Use
  Company Number: US-INNOCOLL BIOTHERAPEUTICS-2023INN00003

PATIENT
  Age: 69 Year
  Sex: Male

DRUGS (2)
  1. BUPIVACAINE [Suspect]
     Active Substance: BUPIVACAINE
     Indication: Local anaesthesia
     Dosage: 2 ML/HR
  2. BUPIVACAINE [Suspect]
     Active Substance: BUPIVACAINE
     Indication: Local anaesthesia
     Dosage: 2 ML/HR

REACTIONS (1)
  - Drug-induced liver injury [Recovered/Resolved]
